FAERS Safety Report 17632874 (Version 2)
Quarter: 2020Q2

REPORT INFORMATION
  Report Type: Report from Study
  Country: US (occurrence: US)
  Receive Date: 20200406
  Receipt Date: 20200501
  Transmission Date: 20200713
  Serious: No
  Sender: FDA-Public Use
  Company Number: US-SA-2020SA084492

PATIENT
  Age: 57 Year
  Sex: Male
  Weight: 133.79 kg

DRUGS (3)
  1. TERIFLUNOMIDE. [Suspect]
     Active Substance: TERIFLUNOMIDE
     Dosage: 14 G, QD
     Route: 048
     Dates: start: 202001
  2. TERIFLUNOMIDE. [Suspect]
     Active Substance: TERIFLUNOMIDE
     Indication: MULTIPLE SCLEROSIS
     Dosage: 7 MG, QD
     Route: 048
     Dates: start: 20181207, end: 20190106
  3. TERIFLUNOMIDE. [Suspect]
     Active Substance: TERIFLUNOMIDE
     Dosage: 14 MG, QD
     Route: 048
     Dates: start: 20190107, end: 201912

REACTIONS (3)
  - Depression [Not Recovered/Not Resolved]
  - Depressed mood [Unknown]
  - Decreased interest [Unknown]

NARRATIVE: CASE EVENT DATE: 2019
